FAERS Safety Report 7325532-8 (Version None)
Quarter: 2011Q1

REPORT INFORMATION
  Report Type: 
  Country: None (occurrence: None)
  Receive Date: 20110302
  Receipt Date: 20110218
  Transmission Date: 20110831
  Serious: Yes (Hospitalization, Other)
  Sender: FDA-Public Use
  Company Number: US-ELI_LILLY_AND_COMPANY-US201004007161

PATIENT
  Sex: Female

DRUGS (19)
  1. SINGULAIR [Concomitant]
     Dosage: 10 MG, UNK
  2. ALLERGENS EXTRACT NOS [Concomitant]
     Dosage: UNK, 2/W
  3. OXYCODONE [Concomitant]
     Dosage: 15 MG, 4/D
  4. BYETTA [Suspect]
     Dosage: 10 UG, 2/D
     Route: 058
     Dates: start: 20050908
  5. REQUIP [Concomitant]
     Dosage: 2 MG, UNK
  6. CLONAZEPAM [Concomitant]
     Dosage: 1 MG, AS NEEDED
  7. VAGIFEM [Concomitant]
     Dosage: 25 MG, 2/W
  8. POTASSIUM CITRATE [Concomitant]
     Dosage: 2160 MG, 2/D
  9. BYETTA [Suspect]
     Indication: DIABETES MELLITUS
     Dosage: 5 UG, 2/D
     Route: 058
     Dates: start: 20050808, end: 20050908
  10. ZYRTEC [Concomitant]
     Dosage: 10 MG, DAILY (1/D)
  11. MAXAIR [Concomitant]
     Dosage: UNK, AS NEEDED
  12. LOVASTATIN [Concomitant]
     Dosage: 40 MG, DAILY (1/D)
  13. CLONAZEPAM [Concomitant]
     Dosage: 2 MG, AS NEEDED
  14. TRI-LUMA [Concomitant]
  15. SYNTHROID [Concomitant]
     Dosage: 0.125 MG, 5/W
  16. MACRODANTIN [Concomitant]
     Dosage: 50 MG, AS NEEDED
  17. ASTELIN [Concomitant]
  18. SYNTHROID [Concomitant]
     Dosage: 0.187 MG, 2/W
  19. PERI-COLACE [Concomitant]
     Dosage: 200 MG, DAILY (1/D)

REACTIONS (6)
  - STENT PLACEMENT [None]
  - GASTRIC BYPASS [None]
  - HERNIA REPAIR [None]
  - HYDRONEPHROSIS [None]
  - THYROID CANCER [None]
  - NEPHROLITHIASIS [None]
